FAERS Safety Report 18982243 (Version 1)
Quarter: 2021Q1

REPORT INFORMATION
  Report Type: Spontaneous
  Country: CN (occurrence: CN)
  Receive Date: 20210308
  Receipt Date: 20210308
  Transmission Date: 20210420
  Serious: Yes (Death)
  Sender: FDA-Public Use
  Company Number: CN-ASTRAZENECA-2021A111231

PATIENT
  Age: 59 Year
  Sex: Male
  Weight: 50 kg

DRUGS (1)
  1. IMFINZI [Suspect]
     Active Substance: DURVALUMAB
     Indication: NON-SMALL CELL LUNG CANCER STAGE III
     Dosage: THE SPECIFICATION AND DOSAGE OF THE DRUG: 1000MG
     Route: 042
     Dates: start: 20201019, end: 20201120

REACTIONS (1)
  - Death [Fatal]
